FAERS Safety Report 21787391 (Version 1)
Quarter: 2022Q4

REPORT INFORMATION
  Report Type: Report from Study
  Country: DE (occurrence: None)
  Receive Date: 20221228
  Receipt Date: 20221228
  Transmission Date: 20230113
  Serious: Yes (Hospitalization)
  Sender: FDA-Public Use
  Company Number: DE-ROCHE-2188337

PATIENT
  Age: 51 Year
  Sex: Female

DRUGS (20)
  1. PIRFENIDONE [Suspect]
     Active Substance: PIRFENIDONE
     Indication: Bronchiolitis obliterans syndrome
     Dosage: ON 10/SEP/2018, RECEIVED MOST RECENT DOSE OF BLINDED PIRFENIDONE.
     Route: 048
     Dates: start: 20180821
  2. TACROLIMUS [Concomitant]
     Active Substance: TACROLIMUS
  3. MYCOPHENOLATE MOFETIL [Concomitant]
     Active Substance: MYCOPHENOLATE MOFETIL
  4. PREDNISOLONE [Concomitant]
     Active Substance: PREDNISOLONE
  5. SULFAMETHOXAZOLE\TRIMETHOPRIM [Concomitant]
     Active Substance: SULFAMETHOXAZOLE\TRIMETHOPRIM
  6. AZITHROMYCIN [Concomitant]
     Active Substance: AZITHROMYCIN
  7. PANTOPRAZOLE SODIUM [Concomitant]
     Active Substance: PANTOPRAZOLE SODIUM
  8. SPASMEX (GERMANY) [Concomitant]
  9. NOVALGIN (METAMIZOLE SODIUM) [Concomitant]
     Active Substance: METAMIZOLE SODIUM
  10. FERROUS GLYCINE SULFATE [Concomitant]
     Active Substance: FERROUS GLYCINE SULFATE
  11. TORSEMIDE [Concomitant]
     Active Substance: TORSEMIDE
  12. CHOLECALCIFEROL [Concomitant]
     Active Substance: CHOLECALCIFEROL
  13. ZOMETA [Concomitant]
     Active Substance: ZOLEDRONIC ACID
  14. CITALOPRAM [Concomitant]
     Active Substance: CITALOPRAM HYDROBROMIDE
  15. LYRICA [Concomitant]
     Active Substance: PREGABALIN
  16. FOSTER [Concomitant]
     Active Substance: BECLOMETHASONE\FORMOTEROL
  17. FORMOTEROL [Concomitant]
     Active Substance: FORMOTEROL
  18. BECLOMETHASONE DIPROPIONATE [Concomitant]
     Active Substance: BECLOMETHASONE DIPROPIONATE
  19. ALBUTEROL [Concomitant]
     Active Substance: ALBUTEROL
  20. SODIUM CHLORIDE [Concomitant]
     Active Substance: SODIUM CHLORIDE

REACTIONS (1)
  - C-reactive protein increased [Unknown]

NARRATIVE: CASE EVENT DATE: 20180918
